FAERS Safety Report 19245196 (Version 1)
Quarter: 2021Q2

REPORT INFORMATION
  Report Type: Report from Study
  Country: CA (occurrence: CA)
  Receive Date: 20210511
  Receipt Date: 20210511
  Transmission Date: 20210717
  Serious: Yes (Other)
  Sender: FDA-Public Use
  Company Number: CA-NALPROPION PHARMACEUTICALS INC.-2021-012815

PATIENT

DRUGS (3)
  1. CONTRAVE [Suspect]
     Active Substance: BUPROPION HYDROCHLORIDE\NALTREXONE HYDROCHLORIDE
     Dosage: 90 MG/8 MG, 1 TABLET IN THE MORNING, 1 TABLET IN THE AFTERNOON
     Route: 048
     Dates: start: 20210329, end: 20210404
  2. CONTRAVE [Suspect]
     Active Substance: BUPROPION HYDROCHLORIDE\NALTREXONE HYDROCHLORIDE
     Dosage: 90 MG/8 MG, 1 TAB AM, 1 TAB IN THE NOON (12:00) AND 1 TAB PM. LAST DAY TOOK 2 MORNING AND 1 AT NIGH
     Route: 048
     Dates: start: 20210405, end: 202104
  3. CONTRAVE [Suspect]
     Active Substance: BUPROPION HYDROCHLORIDE\NALTREXONE HYDROCHLORIDE
     Indication: WEIGHT CONTROL
     Dosage: 90 MG/8 MG, 1 TABLET IN THE MORNING
     Route: 048
     Dates: start: 20210322, end: 20210328

REACTIONS (6)
  - Haemorrhage [Recovered/Resolved]
  - Fatigue [Not Recovered/Not Resolved]
  - Headache [Recovered/Resolved]
  - Product administration error [Unknown]
  - Inappropriate schedule of product administration [Unknown]
  - Ovarian cyst [Recovered/Resolved]

NARRATIVE: CASE EVENT DATE: 20210405
